FAERS Safety Report 10968133 (Version 1)
Quarter: 2015Q1

REPORT INFORMATION
  Report Type: Spontaneous
  Country: US (occurrence: US)
  Receive Date: 20150330
  Receipt Date: 20150330
  Transmission Date: 20150721
  Serious: No
  Sender: FDA-Public Use
  Company Number: US-GLAXOSMITHKLINE-US2015GSK025186

PATIENT
  Sex: Male

DRUGS (14)
  1. SERTRALINE HYDROCHLORIDE. [Concomitant]
     Active Substance: SERTRALINE HYDROCHLORIDE
  2. VITAMIN B12 [Concomitant]
     Active Substance: CYANOCOBALAMIN
  3. LATANOPROST. [Concomitant]
     Active Substance: LATANOPROST
  4. CIALIS [Concomitant]
     Active Substance: TADALAFIL
  5. PRILOSEC [Concomitant]
     Active Substance: OMEPRAZOLE MAGNESIUM
  6. VOTRIENT [Suspect]
     Active Substance: PAZOPANIB HYDROCHLORIDE
     Indication: PLASMA CELL MYELOMA
     Dosage: 800 MG, 1D
     Route: 048
     Dates: start: 20150131, end: 20150216
  7. SULFAMETHOXAZOLE-TRIMETHOPRIM (SMZ) [Concomitant]
     Active Substance: SULFAMETHOXAZOLE\TRIMETHOPRIM
  8. ASPIRIN+CITRIC ACID+NA CO3+NA HCO3 [Concomitant]
  9. KYPROLIS [Concomitant]
     Active Substance: CARFILZOMIB
  10. ZOMETA [Concomitant]
     Active Substance: ZOLEDRONIC ACID
  11. VOTRIENT [Suspect]
     Active Substance: PAZOPANIB HYDROCHLORIDE
     Indication: PROSTATE CANCER
  12. VALACYCLOVIR CAPSULE [Concomitant]
  13. AZITHROMYCIN [Concomitant]
     Active Substance: AZITHROMYCIN ANHYDROUS
  14. DEXAMETHASONE. [Concomitant]
     Active Substance: DEXAMETHASONE

REACTIONS (5)
  - Fatigue [Unknown]
  - Myalgia [Unknown]
  - Dysphonia [Unknown]
  - Balance disorder [Unknown]
  - Gait disturbance [Unknown]
